FAERS Safety Report 6084603-7 (Version None)
Quarter: 2009Q1

REPORT INFORMATION
  Report Type: 
  Country: None (occurrence: None)
  Receive Date: 20090211
  Receipt Date: 20080123
  Transmission Date: 20090719
  Serious: Yes (Other)
  Sender: FDA-Public Use
  Company Number: US-WYE-H02272408

PATIENT
  Age: 50 Year
  Sex: Male
  Weight: 86.26 kg

DRUGS (3)
  1. EFFEXOR [Suspect]
  2. LUNESTA [Concomitant]
  3. LEXAPRO [Concomitant]

REACTIONS (1)
  - RHABDOMYOLYSIS [None]
